FAERS Safety Report 7683252-4 (Version None)
Quarter: 2011Q3

REPORT INFORMATION
  Report Type: 
  Country: None (occurrence: None)
  Receive Date: 20110815
  Receipt Date: 20110808
  Transmission Date: 20111222
  Serious: Yes (Other)
  Sender: FDA-Public Use
  Company Number: US-CEPHALON-US020250

PATIENT
  Age: 62 Year
  Sex: Male

DRUGS (1)
  1. PROVIGIL [Suspect]
     Indication: SLEEP APNOEA SYNDROME
     Route: 048

REACTIONS (2)
  - ELECTROCARDIOGRAM ST SEGMENT ELEVATION [None]
  - HEART RATE INCREASED [None]
